FAERS Safety Report 10818149 (Version 2)
Quarter: 2015Q1

REPORT INFORMATION
  Report Type: Spontaneous
  Country: US (occurrence: US)
  Receive Date: 20150218
  Receipt Date: 20150304
  Transmission Date: 20150721
  Serious: No
  Sender: FDA-Public Use
  Company Number: US-GLAXOSMITHKLINE-US2015GSK006530

PATIENT
  Sex: Male

DRUGS (15)
  1. TRIAMCINOLONE CREAM [Concomitant]
  2. LEVOTHYROXINE [Concomitant]
     Active Substance: LEVOTHYROXINE
  3. ZOLOFT [Concomitant]
     Active Substance: SERTRALINE HYDROCHLORIDE
  4. AMLODIPINE [Concomitant]
     Active Substance: AMLODIPINE BESYLATE
  5. FUROSEMIDE. [Concomitant]
     Active Substance: FUROSEMIDE
  6. VOTRIENT [Suspect]
     Active Substance: PAZOPANIB HYDROCHLORIDE
     Dosage: UNK
  7. ONDANSETRON [Concomitant]
     Active Substance: ONDANSETRON
  8. VOTRIENT [Suspect]
     Active Substance: PAZOPANIB HYDROCHLORIDE
     Indication: RENAL CANCER
     Dosage: 800 MG, QD
     Route: 048
     Dates: start: 201410
  9. TAMSULOSIN [Concomitant]
     Active Substance: TAMSULOSIN
  10. TYLENOL [Concomitant]
     Active Substance: ACETAMINOPHEN
  11. IMODIUM [Concomitant]
     Active Substance: LOPERAMIDE HYDROCHLORIDE
  12. CLONIDINE. [Concomitant]
     Active Substance: CLONIDINE
  13. ZANTAC [Concomitant]
     Active Substance: RANITIDINE HYDROCHLORIDE
  14. METRONIDAZOLE. [Concomitant]
     Active Substance: METRONIDAZOLE
  15. ZOLPIDEM [Concomitant]
     Active Substance: ZOLPIDEM\ZOLPIDEM TARTRATE

REACTIONS (5)
  - Rash papular [Unknown]
  - Dysgeusia [Recovering/Resolving]
  - Drug ineffective [Unknown]
  - Vomiting [Unknown]
  - Diarrhoea [Unknown]
